FAERS Safety Report 9239412 (Version 7)
Quarter: 2015Q3

REPORT INFORMATION
  Report Type: Spontaneous
  Country: US (occurrence: US)
  Receive Date: 20130418
  Receipt Date: 20150911
  Transmission Date: 20151125
  Serious: No
  Sender: FDA-Public Use
  Company Number: US-009507513-1304USA008312

PATIENT
  Sex: Male

DRUGS (1)
  1. PROPECIA [Suspect]
     Active Substance: FINASTERIDE
     Indication: ANDROGENETIC ALOPECIA
     Dosage: 1 MG, UNK
     Route: 048
     Dates: start: 20010313, end: 20110702

REACTIONS (19)
  - Mitral valve prolapse [Unknown]
  - Major depression [Unknown]
  - Fatigue [Unknown]
  - Attention deficit/hyperactivity disorder [Unknown]
  - Hypertension [Unknown]
  - Depression [Not Recovered/Not Resolved]
  - Cognitive disorder [Unknown]
  - Amnesia [Unknown]
  - Libido decreased [Not Recovered/Not Resolved]
  - Upper-airway cough syndrome [Unknown]
  - Erectile dysfunction [Unknown]
  - Secondary hypogonadism [Unknown]
  - Anxiety [Unknown]
  - Insomnia [Not Recovered/Not Resolved]
  - Genital atrophy [Unknown]
  - Anxiety disorder [Unknown]
  - Stress [Not Recovered/Not Resolved]
  - Disturbance in attention [Unknown]
  - Sexual dysfunction [Unknown]

NARRATIVE: CASE EVENT DATE: 2005
